FAERS Safety Report 19328303 (Version 1)
Quarter: 2021Q2

REPORT INFORMATION
  Report Type: Spontaneous
  Country: GR (occurrence: GR)
  Receive Date: 20210528
  Receipt Date: 20210528
  Transmission Date: 20210717
  Serious: Yes (Other)
  Sender: FDA-Public Use
  Company Number: GR-ROCHE-2836167

PATIENT
  Age: 71 Year
  Sex: Female

DRUGS (1)
  1. MABTHERA [Suspect]
     Active Substance: RITUXIMAB
     Indication: DIFFUSE LARGE B-CELL LYMPHOMA
     Route: 065
     Dates: start: 20200831

REACTIONS (8)
  - Thrombocytopenia [Unknown]
  - Infusion related reaction [Unknown]
  - Haemolysis [Unknown]
  - Haematotoxicity [Unknown]
  - Diffuse large B-cell lymphoma [Unknown]
  - Cytomegalovirus infection [Unknown]
  - Opportunistic infection [Unknown]
  - Pneumocystis jirovecii pneumonia [Unknown]

NARRATIVE: CASE EVENT DATE: 202009
